FAERS Safety Report 9381980 (Version 1)
Quarter: 2013Q3

REPORT INFORMATION
  Report Type: Spontaneous
  Country: TR (occurrence: TR)
  Receive Date: 20130703
  Receipt Date: 20130703
  Transmission Date: 20140515
  Serious: Yes (Other)
  Sender: FDA-Public Use
  Company Number: TR-ROXANE LABORATORIES, INC.-2013-RO-01074RO

PATIENT
  Age: 22 Year
  Sex: Female

DRUGS (2)
  1. OXCARBAZEPINE [Suspect]
     Indication: PARTIAL SEIZURES
     Dosage: 1050 MG
  2. LEVETIRACETAM [Suspect]
     Indication: PARTIAL SEIZURES

REACTIONS (2)
  - Hearing impaired [Recovered/Resolved]
  - Drug ineffective [Unknown]
